FAERS Safety Report 26013624 (Version 2)
Quarter: 2025Q4

REPORT INFORMATION
  Report Type: Spontaneous
  Country: US (occurrence: US)
  Receive Date: 20251107
  Receipt Date: 20251230
  Transmission Date: 20260117
  Serious: Yes (Other)
  Sender: WALMART
  Company Number: US-Walmart-2188114

PATIENT
  Sex: Male

DRUGS (1)
  1. ISOPROPYL ALCOHOL [Suspect]
     Active Substance: ISOPROPYL ALCOHOL

REACTIONS (1)
  - Thermal burn [Unknown]
